FAERS Safety Report 20487641 (Version 1)
Quarter: 2022Q1

REPORT INFORMATION
  Report Type: Spontaneous
  Country: AU (occurrence: AU)
  Receive Date: 20220218
  Receipt Date: 20220218
  Transmission Date: 20220423
  Serious: Yes (Life-Threatening, Hospitalization, Other)
  Sender: FDA-Public Use
  Company Number: AU-CHEPLA-2022000270

PATIENT
  Age: 22 Year
  Sex: Male
  Weight: 70 kg

DRUGS (6)
  1. ETOPOSIDE PHOSPHATE [Suspect]
     Active Substance: ETOPOSIDE PHOSPHATE
     Indication: Testicular germ cell tumour mixed
     Dosage: 5 ML GIVEN (APROX. 7 MG ETOPOSIDE)
     Route: 042
     Dates: start: 2021, end: 2021
  2. BLEOMYCIN [Suspect]
     Active Substance: BLEOMYCIN SULFATE
     Indication: Testicular germ cell tumour mixed
     Dosage: 30000 IU/DAY ON DAYS 1, 8, 15, GIVEN EVERY 21 DAYS FOR 2 CYCLES
     Route: 042
     Dates: start: 2021
  3. CISPLATIN [Suspect]
     Active Substance: CISPLATIN
     Indication: Testicular germ cell tumour mixed
     Dosage: 20 MG/,M2 IV ON DAYS 1 THROUGH 5, GIVEN EVERY 21 DAYS FOR 2 CYCLES
     Route: 042
     Dates: start: 2021
  4. NETUPITANT\PALONOSETRON HYDROCHLORIDE [Concomitant]
     Active Substance: NETUPITANT\PALONOSETRON HYDROCHLORIDE
     Route: 048
     Dates: start: 2021
  5. DEXAMETHASONE [Concomitant]
     Active Substance: DEXAMETHASONE
     Route: 048
     Dates: start: 2021
  6. Magnesium sulphate hydration [Concomitant]
     Route: 042
     Dates: start: 2021

REACTIONS (3)
  - Type I hypersensitivity [Recovering/Resolving]
  - Anaphylactic shock [Recovering/Resolving]
  - Toxicity to various agents [Recovering/Resolving]

NARRATIVE: CASE EVENT DATE: 20210101
